FAERS Safety Report 9835306 (Version 1)
Quarter: 2014Q1

REPORT INFORMATION
  Report Type: Spontaneous
  Country: US (occurrence: US)
  Receive Date: 20140122
  Receipt Date: 20140122
  Transmission Date: 20141002
  Serious: No
  Sender: FDA-Public Use
  Company Number: US-BRISTOL-MYERS SQUIBB COMPANY-19927334

PATIENT
  Sex: Female
  Weight: 97.5 kg

DRUGS (6)
  1. ELIQUIS [Suspect]
  2. DILTIAZEM HCL [Concomitant]
     Dosage: 240MG EVERY MORNING
  3. PRAVASTATIN SODIUM [Concomitant]
  4. CHOLESTEROL MEDICATION [Concomitant]
     Dosage: QPM
  5. NABUMETONE [Concomitant]
  6. ALLOPURINOL [Concomitant]
     Indication: NEPHROLITHIASIS

REACTIONS (4)
  - Tremor [Unknown]
  - Dyspnoea [Unknown]
  - Neck pain [Unknown]
  - Hyperhidrosis [Unknown]
